FAERS Safety Report 9352673 (Version 1)
Quarter: 2013Q2

REPORT INFORMATION
  Report Type: Report from Study
  Country: JP (occurrence: JP)
  Receive Date: 20130618
  Receipt Date: 20130618
  Transmission Date: 20140414
  Serious: Yes (Hospitalization)
  Sender: FDA-Public Use
  Company Number: JP-ROCHE-767122

PATIENT
  Age: 77 Year
  Sex: Male

DRUGS (20)
  1. RITUXIMAB [Suspect]
     Indication: B-CELL LYMPHOMA
     Dosage: 250 MG/M2, UNK
     Route: 042
  2. RITUXIMAB [Suspect]
     Dosage: 250 MG/M2, UNK
     Route: 042
  3. ZEVALIN [Suspect]
     Indication: B-CELL LYMPHOMA
     Dosage: 14.8 UNK, UNK, Y-90 ZEVALIN
     Route: 042
  4. ZEVALIN [Suspect]
     Indication: B-CELL LYMPHOMA
     Dosage: 130 MBQ, UNK, IN-111 ZEVALIN
     Route: 042
  5. ETOPOSIDE [Suspect]
     Indication: B-CELL LYMPHOMA
     Route: 065
     Dates: start: 20090929, end: 20091002
  6. CYTARABINE [Suspect]
     Indication: B-CELL LYMPHOMA
     Route: 065
     Dates: start: 20091003, end: 20091003
  7. SOLU-CORTEF [Concomitant]
     Indication: PREMEDICATION
     Dosage: UNK
     Route: 065
  8. SOLU-CORTEF [Concomitant]
     Dosage: UNK
     Route: 065
  9. NOVORAPID [Concomitant]
     Indication: DIABETES MELLITUS
     Dosage: 23 UNIT, QD
     Route: 058
  10. LANTUS [Concomitant]
     Indication: DIABETES MELLITUS
     Dosage: 16 UNIT, QD
     Route: 058
  11. CRAVIT [Concomitant]
     Indication: PROPHYLAXIS
     Dosage: 500 MG, QD
     Route: 048
     Dates: start: 20091103, end: 20091228
  12. CRAVIT [Concomitant]
     Dosage: 500 MG, QD
     Route: 048
     Dates: start: 20091103, end: 20091228
  13. DIFLUCAN [Concomitant]
     Indication: INFECTION PROPHYLAXIS
     Dosage: 200 MG, QD
     Route: 048
     Dates: start: 20091103, end: 20100112
  14. DIFLUCAN [Concomitant]
     Dosage: 200 MG, QD
     Route: 048
     Dates: start: 20091103, end: 20100112
  15. TAKEPRON [Concomitant]
     Indication: PROPHYLAXIS
     Dosage: 30 MG, QD
     Route: 048
     Dates: start: 20091103, end: 20091215
  16. TAKEPRON [Concomitant]
     Dosage: 30 MG, QD
     Route: 048
     Dates: start: 20091103, end: 20091215
  17. SULFAMETHOXAZOLE/TRIMETHOPRIM [Concomitant]
     Indication: PROPHYLAXIS
     Dosage: 1 TABLET, QD
     Route: 048
     Dates: start: 20091103, end: 20100202
  18. SHIN-BIOFERMIN S [Concomitant]
     Indication: BOWEL MOVEMENT IRREGULARITY
     Dosage: 3 G, QD
     Route: 048
  19. PURSENNID [Concomitant]
     Indication: CONSTIPATION
     Dosage: UNK
     Route: 048
  20. MAGLAX [Concomitant]
     Indication: CONSTIPATION
     Dosage: UNK
     Route: 048

REACTIONS (2)
  - Neutrophil count decreased [Recovered/Resolved]
  - Gastric cancer [Recovered/Resolved]
